FAERS Safety Report 13146951 (Version 3)
Quarter: 2018Q3

REPORT INFORMATION
  Report Type: Report from Study
  Country: US (occurrence: US)
  Receive Date: 20170124
  Receipt Date: 20180719
  Transmission Date: 20181010
  Serious: No
  Sender: FDA-Public Use
  Company Number: US-AMGEN-USASL2016153439

PATIENT
  Age: 46 Year
  Sex: Male

DRUGS (2)
  1. REPATHA [Interacting]
     Active Substance: EVOLOCUMAB
     Indication: HYPERLIPIDAEMIA
  2. REPATHA [Suspect]
     Active Substance: EVOLOCUMAB
     Indication: BLOOD CHOLESTEROL INCREASED
     Dosage: 140 MG, Q2WK
     Route: 065
     Dates: start: 2016

REACTIONS (5)
  - Fatigue [Unknown]
  - Sinusitis [Unknown]
  - Post-traumatic stress disorder [Unknown]
  - Influenza like illness [Unknown]
  - Back pain [Unknown]

NARRATIVE: CASE EVENT DATE: 2016
